FAERS Safety Report 5968815-6 (Version None)
Quarter: 2008Q4

REPORT INFORMATION
  Report Type: 
  Country: None (occurrence: None)
  Receive Date: 20081126
  Receipt Date: 20081117
  Transmission Date: 20090506
  Serious: Yes (Other)
  Sender: FDA-Public Use
  Company Number: CA-JNJFOC-20081104533

PATIENT
  Sex: Male

DRUGS (10)
  1. REMICADE [Suspect]
     Indication: DRUG USE FOR UNKNOWN INDICATION
     Route: 042
  2. PAXIL [Concomitant]
  3. BENADRYL [Concomitant]
  4. OMEPRAZOLE [Concomitant]
  5. VITAMIN K TAB [Concomitant]
  6. CALCIUM CITRATE [Concomitant]
  7. VENTOLIN [Concomitant]
  8. FLOVENT [Concomitant]
  9. AMLIZIDE [Concomitant]
  10. VITAMIN D [Concomitant]

REACTIONS (5)
  - DIARRHOEA [None]
  - FATIGUE [None]
  - HYPERSOMNIA [None]
  - PRURITUS [None]
  - VOMITING [None]
